FAERS Safety Report 5654028-4 (Version None)
Quarter: 2008Q1

REPORT INFORMATION
  Report Type: 
  Country: None (occurrence: None)
  Receive Date: 20080306
  Receipt Date: 20080225
  Transmission Date: 20080703
  Serious: Yes (Hospitalization)
  Sender: FDA-Public Use
  Company Number: JP-PFIZER INC-2008009187

PATIENT
  Sex: Male
  Weight: 54.5 kg

DRUGS (4)
  1. EPLERENONE [Suspect]
     Indication: CARDIAC FAILURE
     Route: 048
     Dates: start: 20071214, end: 20080123
  2. TRANDOLAPRIL [Suspect]
     Indication: CARDIAC FAILURE
     Route: 048
     Dates: start: 20050101, end: 20080204
  3. CIPRALAN [Suspect]
     Indication: CARDIAC FAILURE
     Route: 048
     Dates: start: 20050101, end: 20080204
  4. CARVEDILOL [Concomitant]
     Route: 048

REACTIONS (1)
  - AGRANULOCYTOSIS [None]
